FAERS Safety Report 21984747 (Version 1)
Quarter: 2023Q1

REPORT INFORMATION
  Report Type: Spontaneous
  Country: US (occurrence: US)
  Receive Date: 20230213
  Receipt Date: 20230213
  Transmission Date: 20230417
  Serious: Yes (Hospitalization, Other)
  Sender: FDA-Public Use
  Company Number: US-Hikma Pharmaceuticals USA Inc.-US-H14001-23-00417

PATIENT
  Age: 68 Year
  Sex: Female
  Weight: 78.5 kg

DRUGS (32)
  1. ATIVAN [Suspect]
     Active Substance: LORAZEPAM
     Indication: Insomnia
     Dosage: UNKNOWN
     Route: 065
  2. ATIVAN [Suspect]
     Active Substance: LORAZEPAM
     Dosage: 4-5 MG AT BEDTIME (HS)
     Route: 065
     Dates: start: 20230123
  3. KORLYM [Suspect]
     Active Substance: MIFEPRISTONE
     Indication: Cushing^s syndrome
     Route: 048
     Dates: start: 20220708, end: 20220831
  4. KORLYM [Suspect]
     Active Substance: MIFEPRISTONE
     Route: 048
     Dates: start: 20220901, end: 2022
  5. KORLYM [Suspect]
     Active Substance: MIFEPRISTONE
     Route: 048
     Dates: start: 20220908, end: 2022
  6. KORLYM [Suspect]
     Active Substance: MIFEPRISTONE
     Route: 048
     Dates: start: 2022
  7. XANAX [Suspect]
     Active Substance: ALPRAZOLAM
     Indication: Insomnia
     Dosage: UNKNOWN
     Route: 065
  8. ADDERALL [Concomitant]
     Active Substance: AMPHETAMINE ASPARTATE\AMPHETAMINE SULFATE\DEXTROAMPHETAMINE SACCHARATE\DEXTROAMPHETAMINE SULFATE
     Indication: Product used for unknown indication
     Dosage: UNKNOWN
     Route: 065
  9. ALPRAZOLAM [Concomitant]
     Active Substance: ALPRAZOLAM
     Indication: Product used for unknown indication
     Dosage: UNKNOWN
     Route: 065
  10. AMITRIPTYLINE [Concomitant]
     Active Substance: AMITRIPTYLINE
     Indication: Product used for unknown indication
     Dosage: UNKNOWN
     Route: 065
  11. CDB OIL [Concomitant]
     Indication: Product used for unknown indication
     Dosage: UNKNOWN
     Route: 065
  12. CINNAMON [Concomitant]
     Active Substance: CINNAMON
     Indication: Product used for unknown indication
     Dosage: UNKNOWN
     Route: 065
  13. ELDERBERRY BLACK FLOWERS [Concomitant]
     Indication: Product used for unknown indication
     Dosage: UNKNOWN
     Route: 065
  14. ETODOLAC [Concomitant]
     Active Substance: ETODOLAC
     Indication: Product used for unknown indication
     Dosage: UNKNOWN
     Route: 065
  15. GABAPENTIN [Concomitant]
     Active Substance: GABAPENTIN
     Indication: Product used for unknown indication
     Dosage: UNKNOWN
     Route: 065
  16. JARDIANCE [Concomitant]
     Active Substance: EMPAGLIFLOZIN
     Indication: Product used for unknown indication
     Dosage: UNKNOWN
     Route: 065
  17. LEXAPRO [Concomitant]
     Active Substance: ESCITALOPRAM OXALATE
     Indication: Product used for unknown indication
     Dosage: UNKNOWN
     Route: 065
  18. MAGNESIUM [Concomitant]
     Active Substance: MAGNESIUM
     Indication: Product used for unknown indication
     Dosage: UNKNOWN
     Route: 065
  19. HERBALS\PLANTAGO OVATA SEED\PLANTAGO SEED [Concomitant]
     Active Substance: HERBALS\PLANTAGO OVATA SEED\PLANTAGO SEED
     Indication: Product used for unknown indication
     Dosage: UNKNOWN
     Route: 065
  20. OMEGA 3 AND 6 COMPLEX [Concomitant]
     Indication: Product used for unknown indication
     Dosage: UNKNOWN
     Route: 065
  21. PROBIOTICS NOS [Concomitant]
     Active Substance: PROBIOTICS NOS
     Indication: Product used for unknown indication
     Dosage: UNKNOWN
     Route: 065
  22. RYBELSUS [Concomitant]
     Active Substance: SEMAGLUTIDE
     Indication: Product used for unknown indication
     Dosage: UNKNOWN
     Route: 065
  23. BIOTIN [Concomitant]
     Active Substance: BIOTIN
     Indication: Product used for unknown indication
     Dosage: UNKNOWN
     Route: 065
  24. CYANOCOBALAMIN\DEXPANTHENOL\NIACINAMIDE\PYRIDOXINE HYDROCHLORIDE\RIBOF [Concomitant]
     Active Substance: CYANOCOBALAMIN\DEXPANTHENOL\NIACINAMIDE\PYRIDOXINE HYDROCHLORIDE\RIBOFLAVIN 5^-PHOSPHATE SODIUM\THIA
     Indication: Product used for unknown indication
     Dosage: UNKNOWN
     Route: 065
  25. VALSARTAN-HYDROCHLOROTIAZIDE [Concomitant]
     Indication: Product used for unknown indication
     Dosage: UNKNOWN
     Route: 065
  26. VITAMIN C [Concomitant]
     Active Substance: ASCORBIC ACID
     Indication: Product used for unknown indication
     Dosage: UNKNOWN
     Route: 065
  27. VITAMIN D3 [Concomitant]
     Active Substance: CHOLECALCIFEROL
     Indication: Product used for unknown indication
     Dosage: UNKNOWN
     Route: 065
  28. ZINC [Concomitant]
     Active Substance: ZINC
     Indication: Product used for unknown indication
     Dosage: UNKNOWN
     Route: 065
  29. ZYPREXA [Concomitant]
     Active Substance: OLANZAPINE
     Indication: Product used for unknown indication
     Dosage: UNKNOWN
     Route: 065
  30. COENZYME Q10 [Concomitant]
     Active Substance: DIETARY SUPPLEMENT\UBIDECARENONE
     Indication: Product used for unknown indication
     Dosage: UNKNOWN
     Route: 065
  31. KRILL OIL [Concomitant]
     Active Substance: DIETARY SUPPLEMENT\KRILL OIL
     Indication: Product used for unknown indication
     Dosage: UNKNOWN
     Route: 065
  32. OLANZAPINE [Concomitant]
     Active Substance: OLANZAPINE
     Indication: Product used for unknown indication
     Dosage: UNKNOWN
     Route: 065

REACTIONS (8)
  - Pneumonia viral [Recovered/Resolved]
  - Septic shock [Recovered/Resolved]
  - Blood potassium decreased [Recovering/Resolving]
  - Insomnia [Recovered/Resolved]
  - Muscle spasms [Recovered/Resolved]
  - Weight decreased [Unknown]
  - Skin wrinkling [Unknown]
  - Drug ineffective [Recovered/Resolved]

NARRATIVE: CASE EVENT DATE: 20221001
